FAERS Safety Report 11128550 (Version 4)
Quarter: 2015Q3

REPORT INFORMATION
  Report Type: Report from Study
  Country: TR (occurrence: TR)
  Receive Date: 20150521
  Receipt Date: 20150917
  Transmission Date: 20151125
  Serious: Yes (Hospitalization)
  Sender: FDA-Public Use
  Company Number: TR-ROCHE-1575866

PATIENT
  Age: 50 Year
  Sex: Male
  Weight: 73 kg

DRUGS (8)
  1. KLOROBEN [Concomitant]
     Dosage: MUCOSITIS FOR MOUTH
     Route: 048
     Dates: start: 20150506, end: 20150506
  2. METPAMID [Concomitant]
     Dosage: PROPHYLAXIS FOR VOMIT
     Route: 048
     Dates: start: 20150424, end: 20150506
  3. LASIX [Concomitant]
     Active Substance: FUROSEMIDE
     Dosage: INDICATION: PROPHYLAXI FOR OEDEMA
     Route: 042
     Dates: start: 20150430, end: 20150430
  4. CISPLATIN. [Suspect]
     Active Substance: CISPLATIN
     Indication: HER-2 POSITIVE GASTRIC CANCER
     Route: 042
     Dates: start: 20150430
  5. PANTO (TURKEY) [Concomitant]
     Dosage: PROPHYLAXIS FOR STOMACH
     Route: 048
     Dates: start: 20150424, end: 20150506
  6. TRASTUZUMAB [Suspect]
     Active Substance: TRASTUZUMAB
     Indication: HER-2 POSITIVE GASTRIC CANCER
     Dosage: MOST RECENT DOSE PRIOR TO EVENT ONSET: LOADING DOSE: 584 MG ON DAY 1, FOLLOWED BY MAINTENANCE DOSE O
     Route: 042
     Dates: start: 20150430
  7. PLACEBO [Suspect]
     Active Substance: UNSPECIFIED INGREDIENT
     Indication: HER-2 POSITIVE GASTRIC CANCER
     Route: 042
     Dates: start: 20150430
  8. FLUOROURACIL. [Suspect]
     Active Substance: FLUOROURACIL
     Indication: HER-2 POSITIVE GASTRIC CANCER
     Route: 042
     Dates: start: 20150430

REACTIONS (1)
  - Pulmonary embolism [Recovered/Resolved]

NARRATIVE: CASE EVENT DATE: 20150508
